FAERS Safety Report 5327086-4 (Version None)
Quarter: 2007Q2

REPORT INFORMATION
  Report Type: 
  Country: None (occurrence: None)
  Receive Date: 20070517
  Receipt Date: 20070510
  Transmission Date: 20071010
  Serious: Yes (Other)
  Sender: FDA-Public Use
  Company Number: US-JNJFOC-20070502755

PATIENT
  Sex: Female

DRUGS (5)
  1. TYLENOL [Suspect]
  2. TYLENOL [Suspect]
     Indication: PAIN
     Dosage: DOSE UNKNOWN
  3. PERCOCET [Suspect]
     Indication: PAIN
  4. VITAMIN B-12 [Concomitant]
  5. INTRAVENOUS FLUIDS [Concomitant]

REACTIONS (2)
  - DRUG ADMINISTRATION ERROR [None]
  - JAUNDICE [None]
